FAERS Safety Report 14871756 (Version 1)
Quarter: 2018Q2

REPORT INFORMATION
  Report Type: Spontaneous
  Country: US (occurrence: US)
  Receive Date: 20180509
  Receipt Date: 20180509
  Transmission Date: 20180711
  Serious: Yes (Hospitalization)
  Sender: FDA-Public Use
  Company Number: US-JNJFOC-20180507705

PATIENT
  Age: 88 Year
  Sex: Female
  Weight: 61 kg

DRUGS (11)
  1. AZOPT [Concomitant]
     Active Substance: BRINZOLAMIDE
  2. IMBRUVICA [Suspect]
     Active Substance: IBRUTINIB
     Indication: MONOCLONAL GAMMOPATHY
     Route: 048
  3. VITAMIN B3 [Concomitant]
     Active Substance: NIACIN
  4. LEVOTHYROXINE. [Concomitant]
     Active Substance: LEVOTHYROXINE
  5. ALLOPURINOL. [Concomitant]
     Active Substance: ALLOPURINOL
  6. ZOCOR [Concomitant]
     Active Substance: SIMVASTATIN
  7. IMBRUVICA [Suspect]
     Active Substance: IBRUTINIB
     Indication: MONOCLONAL GAMMOPATHY
     Route: 048
  8. CALCIUM [Concomitant]
     Active Substance: CALCIUM
  9. LATANOPROST. [Concomitant]
     Active Substance: LATANOPROST
  10. VITAMIN B12 [Concomitant]
     Active Substance: CYANOCOBALAMIN
  11. PROLIA [Concomitant]
     Active Substance: DENOSUMAB

REACTIONS (2)
  - Myocardial infarction [Unknown]
  - Malaise [Unknown]

NARRATIVE: CASE EVENT DATE: 20180417
